FAERS Safety Report 13284539 (Version 1)
Quarter: 2017Q1

REPORT INFORMATION
  Report Type: Spontaneous
  Country: CA (occurrence: CA)
  Receive Date: 20170301
  Receipt Date: 20170301
  Transmission Date: 20170428
  Serious: Yes (Other)
  Sender: FDA-Public Use
  Company Number: CA-TEVA-742875ACC

PATIENT
  Age: 69 Year
  Sex: Male

DRUGS (6)
  1. ASAPHEN [Concomitant]
     Active Substance: ASPIRIN
  2. SIMVASTATIN. [Concomitant]
     Active Substance: SIMVASTATIN
  3. NOVO-PREDNISONE [Suspect]
     Active Substance: PREDNISONE
     Indication: PULMONARY FIBROSIS
     Route: 048
  4. JANUMET [Concomitant]
     Active Substance: METFORMIN HYDROCHLORIDE\SITAGLIPTIN PHOSPHATE
  5. GLYBURIDE. [Concomitant]
     Active Substance: GLYBURIDE
  6. PREDNISONE. [Concomitant]
     Active Substance: PREDNISONE

REACTIONS (5)
  - Dry mouth [Unknown]
  - Urinary incontinence [Unknown]
  - Condition aggravated [Unknown]
  - Insomnia [Unknown]
  - Micturition urgency [Unknown]
